FAERS Safety Report 7883202-1 (Version None)
Quarter: 2011Q4

REPORT INFORMATION
  Report Type: 
  Country: None (occurrence: None)
  Receive Date: 20111031
  Receipt Date: 20110505
  Transmission Date: 20120403
  Serious: Yes (Other)
  Sender: FDA-Public Use
  Company Number: 2011MA004489

PATIENT
  Sex: Male
  Weight: 136.0791 kg

DRUGS (41)
  1. LASIX [Concomitant]
  2. PRECOSE [Concomitant]
  3. PROVIGIL [Concomitant]
  4. TESSALON [Concomitant]
  5. ADVAIR DISKUS 100/50 [Concomitant]
  6. COREG [Concomitant]
  7. FLAGYL [Concomitant]
  8. HECTOROL [Concomitant]
  9. KLONOPIN [Concomitant]
  10. PREDNISONE [Concomitant]
  11. ZYRTEC [Concomitant]
  12. COZAAR [Concomitant]
  13. DESIPRAMIDE HCL [Concomitant]
  14. CIPRO [Concomitant]
  15. NEURONTIN [Concomitant]
  16. PLAVIX [Concomitant]
  17. PROTONIX [Concomitant]
  18. XENICAL [Concomitant]
  19. ACIPHEX [Concomitant]
  20. FENTANYL [Concomitant]
  21. LIPITOR [Concomitant]
  22. NORVASC [Concomitant]
  23. PROCRIT [Concomitant]
  24. SENOLARYL [Concomitant]
  25. ALBUTEROL [Concomitant]
  26. ALLOPURINOL [Concomitant]
  27. ASPIRIN [Concomitant]
  28. RENAGEL [Concomitant]
  29. SODIUM BICARBONATE [Concomitant]
  30. XANAX [Concomitant]
  31. ZELNORM [Concomitant]
  32. METOCLOPRAMIDE [Suspect]
     Dosage: 10 MG
     Dates: start: 20060915
  33. AMARYL [Concomitant]
  34. NITROGLYCERIN [Concomitant]
  35. VITAMIN TAB [Concomitant]
  36. STOOL SOFTENER [Concomitant]
  37. INSULIN [Concomitant]
  38. FLONASE [Concomitant]
  39. BACLOFEN [Concomitant]
  40. ENALAPRIL MALEATE [Concomitant]
  41. IMDUR [Concomitant]

REACTIONS (72)
  - SCLERITIS [None]
  - LIP DRY [None]
  - OROMANDIBULAR DYSTONIA [None]
  - VITREOUS HAEMORRHAGE [None]
  - PARAESTHESIA [None]
  - DYSPNOEA [None]
  - NAUSEA [None]
  - ATELECTASIS [None]
  - ELECTROCARDIOGRAM ST-T SEGMENT ABNORMAL [None]
  - SEDATION [None]
  - DRY MOUTH [None]
  - MACULAR OEDEMA [None]
  - ABDOMINAL PAIN [None]
  - GASTROINTESTINAL HAEMORRHAGE [None]
  - EYE IRRITATION [None]
  - ASTHENIA [None]
  - DIVERTICULITIS [None]
  - DEMYELINATION [None]
  - AXONAL NEUROPATHY [None]
  - BLOOD UREA INCREASED [None]
  - BLOOD CREATININE INCREASED [None]
  - COLONIC POLYP [None]
  - DIABETIC GASTROPARESIS [None]
  - FAMILY STRESS [None]
  - EXTRAPYRAMIDAL DISORDER [None]
  - WHEEZING [None]
  - HYPOTENSION [None]
  - DENERVATION ATROPHY [None]
  - BLOOD GLUCOSE INCREASED [None]
  - CONSTIPATION [None]
  - TOXICITY TO VARIOUS AGENTS [None]
  - DRUG INEFFECTIVE [None]
  - SYNCOPE [None]
  - INTERMITTENT CLAUDICATION [None]
  - SNEEZING [None]
  - PROTEIN TOTAL INCREASED [None]
  - HAEMORRHOIDS [None]
  - LEFT VENTRICULAR HYPERTROPHY [None]
  - CONDITION AGGRAVATED [None]
  - BURNING SENSATION [None]
  - ANXIETY [None]
  - IMPAIRED WORK ABILITY [None]
  - OCCULT BLOOD POSITIVE [None]
  - HYPOAESTHESIA [None]
  - CYSTITIS [None]
  - SINUS DISORDER [None]
  - GLYCOSYLATED HAEMOGLOBIN INCREASED [None]
  - BUNDLE BRANCH BLOCK LEFT [None]
  - COUGH [None]
  - TONGUE BITING [None]
  - EYE PRURITUS [None]
  - MUSCULAR WEAKNESS [None]
  - PERIPHERAL SENSORIMOTOR NEUROPATHY [None]
  - AUTOIMMUNE DISORDER [None]
  - CERVICOBRACHIAL SYNDROME [None]
  - PLEURAL EFFUSION [None]
  - RED BLOOD CELL SEDIMENTATION RATE INCREASED [None]
  - TARDIVE DYSKINESIA [None]
  - FRUSTRATION [None]
  - PHOTOPHOBIA [None]
  - ANAL SPHINCTER ATONY [None]
  - ASCITES [None]
  - BLOOD PARATHYROID HORMONE INCREASED [None]
  - MUSCLE SPASMS [None]
  - INGROWING NAIL [None]
  - HERPES ZOSTER MULTI-DERMATOMAL [None]
  - DYSURIA [None]
  - OEDEMA [None]
  - SOMNOLENCE [None]
  - SUDDEN HEARING LOSS [None]
  - SPLENIC GRANULOMA [None]
  - GASTRIC DISORDER [None]
